FAERS Safety Report 19689326 (Version 1)
Quarter: 2021Q3

REPORT INFORMATION
  Report Type: Spontaneous
  Country: US (occurrence: US)
  Receive Date: 20210812
  Receipt Date: 20210812
  Transmission Date: 20211014
  Serious: No
  Sender: FDA-Public Use
  Company Number: US-UNITED THERAPEUTICS-UNT-2021-015388

PATIENT
  Age: 80 Year
  Sex: Male

DRUGS (3)
  1. MELOXICAM. [Interacting]
     Active Substance: MELOXICAM
     Indication: PAIN
     Dosage: UNK
     Route: 065
  2. TYVASO [Suspect]
     Active Substance: TREPROSTINIL
     Indication: PULMONARY ARTERIAL HYPERTENSION
     Dosage: UNK
     Dates: start: 20210805
  3. TYVASO [Interacting]
     Active Substance: TREPROSTINIL
     Dosage: 18 ?G, QID
     Dates: start: 2021

REACTIONS (3)
  - Dizziness [Unknown]
  - Pain [Unknown]
  - Drug interaction [Unknown]

NARRATIVE: CASE EVENT DATE: 2021
